FAERS Safety Report 18524662 (Version 1)
Quarter: 2020Q4

REPORT INFORMATION
  Report Type: Spontaneous
  Country: FR (occurrence: FR)
  Receive Date: 20201119
  Receipt Date: 20201119
  Transmission Date: 20210114
  Serious: Yes (Life-Threatening, Hospitalization, Other)
  Sender: FDA-Public Use
  Company Number: FR-ELI_LILLY_AND_COMPANY-FR202011006347

PATIENT
  Sex: Female
  Weight: 66 kg

DRUGS (4)
  1. RISPERDAL [Suspect]
     Active Substance: RISPERIDONE
     Indication: PRODUCT USED FOR UNKNOWN INDICATION
     Dosage: UNK UNK, UNKNOWN
     Route: 065
  2. IMOVANE [Suspect]
     Active Substance: ZOPICLONE
     Indication: TOXICITY TO VARIOUS AGENTS
     Dosage: 56 DOSAGE FORM, SINGLE
     Route: 048
     Dates: start: 20201020, end: 20201020
  3. HUMALOG [Suspect]
     Active Substance: INSULIN LISPRO
     Indication: TOXICITY TO VARIOUS AGENTS
     Dosage: 300 INTERNATIONAL UNIT, SINGLE
     Route: 058
     Dates: start: 20201020, end: 20201020
  4. DEPAMIDE [Suspect]
     Active Substance: VALPROMIDE
     Indication: TOXICITY TO VARIOUS AGENTS
     Dosage: 10 DOSAGE FORM, SINGLE
     Route: 048
     Dates: start: 20201020, end: 20201020

REACTIONS (4)
  - Hypotension [Recovered/Resolved]
  - Hypoglycaemia [Recovered/Resolved]
  - Coma [Recovered/Resolved]
  - Drug abuse [Unknown]

NARRATIVE: CASE EVENT DATE: 20201020
